FAERS Safety Report 7201816-9 (Version None)
Quarter: 2010Q4

REPORT INFORMATION
  Report Type: 
  Country: None (occurrence: None)
  Receive Date: 20101229
  Receipt Date: 20100909
  Transmission Date: 20110411
  Serious: Yes (Other)
  Sender: FDA-Public Use
  Company Number: US-BAYER-200942399NA

PATIENT
  Sex: Female
  Weight: 45.455 kg

DRUGS (19)
  1. YASMIN [Suspect]
     Indication: HERPES SIMPLEX
     Dates: end: 20060701
  2. YASMIN [Suspect]
     Indication: ACNE
     Dates: start: 20040901, end: 20050101
  3. YASMIN [Suspect]
     Indication: PREMENSTRUAL SYNDROME
     Route: 048
     Dates: start: 20020101
  4. YAZ [Suspect]
     Indication: ACNE
     Dates: start: 20080501, end: 20090801
  5. YAZ [Suspect]
     Indication: CONTRACEPTION
  6. YAZ [Suspect]
     Indication: PREMENSTRUAL SYNDROME
  7. SPIRONOLACTONE [Concomitant]
     Indication: ACNE CYSTIC
     Dates: start: 20060901, end: 20100501
  8. SINGULAIR [Concomitant]
     Indication: ASTHMA
     Dates: start: 20070301
  9. ADVAIR [Concomitant]
     Indication: ASTHMA
     Dates: start: 20070301
  10. MOTRIN [Concomitant]
  11. ADVIL [Concomitant]
  12. VALTREX [Concomitant]
     Indication: HERPES SIMPLEX
     Dosage: DAILY
     Route: 048
     Dates: start: 20040501
  13. NEXIUM [Concomitant]
     Dates: start: 20080301, end: 20090801
  14. PREVACID [Concomitant]
     Dates: start: 20080301, end: 20090801
  15. OVCON-35 [Concomitant]
     Indication: ACNE
  16. OVCON-35 [Concomitant]
     Indication: CONTRACEPTION
  17. OVCON-35 [Concomitant]
     Indication: POLYCYSTIC OVARIES
  18. PROVERA [Concomitant]
     Dosage: PROVERA X 10
  19. ORTHO TRI-CYCLEN [Concomitant]

REACTIONS (10)
  - ABDOMINAL DISCOMFORT [None]
  - ABDOMINAL PAIN UPPER [None]
  - ABDOMINAL TENDERNESS [None]
  - BILIARY DYSKINESIA [None]
  - CHOLECYSTITIS CHRONIC [None]
  - EPIGASTRIC DISCOMFORT [None]
  - NAUSEA [None]
  - PAIN [None]
  - SENSATION OF FOREIGN BODY [None]
  - VOMITING [None]
